FAERS Safety Report 7658003-X (Version None)
Quarter: 2011Q3

REPORT INFORMATION
  Report Type: 
  Country: None (occurrence: None)
  Receive Date: 20110805
  Receipt Date: 20090331
  Transmission Date: 20111222
  Serious: Yes (Death, Other)
  Sender: FDA-Public Use
  Company Number: US-BAYER-200911241NA

PATIENT
  Age: 60 Year
  Sex: Male
  Weight: 106.58 kg

DRUGS (33)
  1. FOSRENOL [Concomitant]
  2. OMNISCAN [Suspect]
     Dosage: 20 ML
     Dates: start: 20070304, end: 20070304
  3. OPTIMARK [Suspect]
     Indication: NUCLEAR MAGNETIC RESONANCE IMAGING
  4. MULTIHANCE [Suspect]
     Indication: NUCLEAR MAGNETIC RESONANCE IMAGING
  5. FOLIC ACID [Concomitant]
  6. NEPHROVITE [VIT C,VIT H,B5,B12,B9,B3,B6,B2,B1 HCL] [Concomitant]
  7. NORVASC [Concomitant]
  8. PHOSLO [Concomitant]
  9. PREDNISONE [Concomitant]
  10. BENZONATATE [Concomitant]
  11. XOPENEX [Concomitant]
  12. LOPRESSOR [Concomitant]
  13. COZAAR [Concomitant]
  14. MAGNEVIST [Suspect]
     Dosage: 20 ML, UNK
     Route: 042
     Dates: start: 20060329
  15. PROHANCE [Suspect]
     Indication: NUCLEAR MAGNETIC RESONANCE IMAGING
  16. LOTREL [Concomitant]
  17. LANTUS [Concomitant]
  18. HUMALOG [Concomitant]
  19. ADVAIR DISKUS 100/50 [Concomitant]
  20. GADOLINIUM IN UNSPECIFIED DRUG [Suspect]
     Dosage: UNK
     Dates: start: 20060726
  21. SINGULAIR [Concomitant]
  22. AMLODIPINE [Concomitant]
  23. OMNISCAN [Suspect]
     Indication: NUCLEAR MAGNETIC RESONANCE IMAGING
     Dosage: 20 ML, UNK
     Dates: start: 20051208, end: 20051208
  24. POTASSIUM CHLORIDE [Concomitant]
  25. FUROSEMIDE [Concomitant]
  26. GABAPENTIN [Concomitant]
  27. BENAZEPRIL HYDROCHLORIDE [Concomitant]
  28. GADOLINIUM IN UNSPECIFIED DRUG [Suspect]
     Dosage: UNK
     Dates: start: 20070507
  29. ATROVENT [Concomitant]
  30. MAGNEVIST [Suspect]
     Indication: NUCLEAR MAGNETIC RESONANCE IMAGING
     Dosage: 20 ML, ONCE
     Dates: start: 20060307, end: 20060307
  31. REQUIP [Concomitant]
  32. COREG [Concomitant]
  33. GADOLINIUM IN UNSPECIFIED DRUG [Suspect]
     Indication: NUCLEAR MAGNETIC RESONANCE IMAGING
     Dosage: 20 ML, UNK
     Route: 042
     Dates: start: 20060725

REACTIONS (5)
  - FIBROSIS [None]
  - NEPHROGENIC SYSTEMIC FIBROSIS [None]
  - ANXIETY [None]
  - EMOTIONAL DISTRESS [None]
  - PAIN [None]
